FAERS Safety Report 5794075-5 (Version None)
Quarter: 2008Q2

REPORT INFORMATION
  Report Type: 
  Country: None (occurrence: None)
  Receive Date: 20080627
  Receipt Date: 20080612
  Transmission Date: 20081010
  Serious: Yes (Other)
  Sender: FDA-Public Use
  Company Number: AU-GENENTECH-263081

PATIENT
  Sex: Female

DRUGS (5)
  1. BEVACIZUMAB [Suspect]
     Dosage: 565 MG, Q3W
     Route: 042
     Dates: start: 20070710
  2. CAPECITABINE [Suspect]
     Indication: COLORECTAL CANCER
     Dosage: 2300 MG, UNK
     Route: 048
     Dates: start: 20070710
  3. MITOMYCIN [Suspect]
     Indication: COLORECTAL CANCER
     Dosage: 7 MG/M2, Q6W
     Route: 042
     Dates: start: 20070710
  4. ALPRIM [Concomitant]
     Indication: DRUG USE FOR UNKNOWN INDICATION
     Dates: start: 20080212, end: 20080216
  5. ATACAND [Concomitant]
     Indication: DRUG USE FOR UNKNOWN INDICATION
     Dates: start: 20080513

REACTIONS (1)
  - BLOOD CREATININE INCREASED [None]
